FAERS Safety Report 18435982 (Version 1)
Quarter: 2020Q4

REPORT INFORMATION
  Report Type: Spontaneous
  Country: US (occurrence: US)
  Receive Date: 20201028
  Receipt Date: 20201028
  Transmission Date: 20210114
  Serious: No
  Sender: FDA-Public Use
  Company Number: None

PATIENT
  Age: 44 Year
  Sex: Female
  Weight: 82.55 kg

DRUGS (1)
  1. ROSUVASTATIN 10MG [Suspect]
     Active Substance: ROSUVASTATIN
     Route: 048
     Dates: end: 20180412

REACTIONS (2)
  - Muscle spasms [None]
  - Gait inability [None]

NARRATIVE: CASE EVENT DATE: 20080406
